FAERS Safety Report 22536144 (Version 1)
Quarter: 2023Q2

REPORT INFORMATION
  Report Type: Spontaneous
  Country: US (occurrence: US)
  Receive Date: 20230608
  Receipt Date: 20230608
  Transmission Date: 20230722
  Serious: No
  Sender: FDA-Public Use
  Company Number: US-SA-SAC20221102001282

PATIENT
  Sex: Female

DRUGS (25)
  1. DUPIXENT [Suspect]
     Active Substance: DUPILUMAB
     Indication: Dermatitis atopic
     Dosage: 300 MG QOW
     Route: 058
  2. ACYCLOVIR [Concomitant]
     Active Substance: ACYCLOVIR
  3. ALLOPURINOL [Concomitant]
     Active Substance: ALLOPURINOL
  4. ACRIVASTINE [Concomitant]
     Active Substance: ACRIVASTINE
  5. CALCIUM [Concomitant]
     Active Substance: CALCIUM
     Dosage: UNK; CALCIUM 500 TAB 500-600M
  6. CETIRIZINE [Concomitant]
     Active Substance: CETIRIZINE HYDROCHLORIDE
  7. CIMETIDINE [Concomitant]
     Active Substance: CIMETIDINE
  8. CULTURELLE [Concomitant]
     Active Substance: LACTOBACILLUS RHAMNOSUS
     Dosage: 60MG
  9. DEXILANT [Concomitant]
     Active Substance: DEXLANSOPRAZOLE
  10. EPINEPHRINE [Concomitant]
     Active Substance: EPINEPHRINE
  11. PRAVASTATIN [Concomitant]
     Active Substance: PRAVASTATIN
  12. PREDNISONE [Concomitant]
     Active Substance: PREDNISONE
     Indication: Dermatitis atopic
     Dosage: 200MG
  13. PRILOCAINE [Concomitant]
     Active Substance: PRILOCAINE
     Dosage: 200MG
  14. SULINDAC [Concomitant]
     Active Substance: SULINDAC
  15. TRAMADOL HCL [Concomitant]
     Active Substance: TRAMADOL HYDROCHLORIDE
  16. POTASSIUM CHLORIDE [Concomitant]
     Active Substance: POTASSIUM CHLORIDE
  17. VENTOLIN HFA [Concomitant]
     Active Substance: ALBUTEROL SULFATE
     Dosage: UNK; VENTOLIN HFA AER 108 (90
  18. TRIAMCINOLONE [Concomitant]
     Active Substance: TRIAMCINOLONE
  19. CYANOCOBALAMIN [Concomitant]
     Active Substance: CYANOCOBALAMIN
  20. ZINC [Concomitant]
     Active Substance: ZINC
  21. VITAMIN C [Concomitant]
     Active Substance: ASCORBIC ACID
  22. CIPROFLOXACIN [Concomitant]
     Active Substance: CIPROFLOXACIN
  23. DIETARY SUPPLEMENT\HERBALS [Concomitant]
     Active Substance: DIETARY SUPPLEMENT\HERBALS
  24. FERROUS SULFATE [Concomitant]
     Active Substance: FERROUS SULFATE
     Dosage: UNK; FERROUS SULF TBE 325 ( TBD 8MG,
  25. PAPAYA [Concomitant]
     Active Substance: PAPAYA

REACTIONS (1)
  - Drug ineffective [Unknown]
